FAERS Safety Report 7624392-5 (Version None)
Quarter: 2011Q3

REPORT INFORMATION
  Report Type: 
  Country: None (occurrence: None)
  Receive Date: 20110720
  Receipt Date: 20110712
  Transmission Date: 20111222
  Serious: Yes (Congenital Anomaly, Other)
  Sender: FDA-Public Use
  Company Number: US-PFIZER INC-2011159565

PATIENT
  Sex: Male
  Weight: 2.5 kg

DRUGS (7)
  1. FIORICET [Concomitant]
     Indication: SLEEP DISORDER
     Dosage: UNK
     Route: 064
     Dates: start: 20071106
  2. AMBIEN [Concomitant]
     Indication: SLEEP DISORDER
     Dosage: 5 MG, UNK
     Route: 064
     Dates: start: 20071106
  3. TYLENOL-500 [Concomitant]
     Indication: MIGRAINE
     Dosage: UNK
     Route: 064
     Dates: start: 20070507
  4. THYROID TAB [Concomitant]
     Indication: HYPOTHYROIDISM
     Dosage: 120 MG, UNK
     Route: 064
  5. PROMETHAZINE [Concomitant]
     Dosage: 25 MG, UNK
     Route: 064
     Dates: start: 20070518
  6. EFFEXOR XR [Suspect]
     Indication: DEPRESSION
     Dosage: 150 MG, 1X/DAY
     Route: 064
  7. ZOFRAN [Concomitant]
     Indication: MIGRAINE
     Dosage: 8 MG, UNK
     Route: 064
     Dates: start: 20070507

REACTIONS (4)
  - PULMONARY VEIN STENOSIS [None]
  - MATERNAL EXPOSURE DURING PREGNANCY [None]
  - HYPOPLASTIC LEFT HEART SYNDROME [None]
  - PATENT DUCTUS ARTERIOSUS [None]
